FAERS Safety Report 19821608 (Version 4)
Quarter: 2021Q3

REPORT INFORMATION
  Report Type: Report from Study
  Country: ES (occurrence: ES)
  Receive Date: 20210913
  Receipt Date: 20210927
  Transmission Date: 20211014
  Serious: Yes (Death, Other)
  Sender: FDA-Public Use
  Company Number: ES-GLAXOSMITHKLINE-US2020GSK194712

PATIENT

DRUGS (1)
  1. BELANTAMAB MAFODOTIN. [Suspect]
     Active Substance: BELANTAMAB MAFODOTIN
     Indication: PLASMA CELL MYELOMA
     Dosage: 100 MG/VIALS/2.5 MG/KG EVERY THREE WEEKS (LYOPHILIZED POWDER) 15 CYCLES
     Route: 042
     Dates: start: 202007

REACTIONS (3)
  - Gastrointestinal haemorrhage [Fatal]
  - Pneumonia [Fatal]
  - Keratopathy [Unknown]
